FAERS Safety Report 6878985-3 (Version None)
Quarter: 2010Q3

REPORT INFORMATION
  Report Type: 
  Country: None (occurrence: None)
  Receive Date: 20100728
  Receipt Date: 20100420
  Transmission Date: 20110219
  Serious: Yes (Death, Disabling, Other)
  Sender: FDA-Public Use
  Company Number: JP-BAYER-201032961GPV

PATIENT
  Age: 49 Year
  Sex: Female
  Weight: 38 kg

DRUGS (20)
  1. FLUDARABINE PHOSPHATE [Suspect]
     Indication: HAEMATOPOIETIC STEM CELL MOBILISATION
     Dates: start: 20090311, end: 20090314
  2. THYMOGLOBULIN [Suspect]
     Indication: STEM CELL TRANSPLANT
     Dates: start: 20090311, end: 20090314
  3. CYCLOPHOSPHAMIDE [Suspect]
     Indication: STEM CELL TRANSPLANT
     Dates: start: 20090311, end: 20090314
  4. ACYCLOVIR [Concomitant]
     Indication: INFECTION PROPHYLAXIS
     Dosage: TOTAL DAILY DOSE: 200 MG
     Dates: start: 20090421, end: 20090421
  5. ACYCLOVIR [Concomitant]
     Dosage: TOTAL DAILY DOSE: 1000 MG
     Dates: start: 20090310, end: 20090420
  6. CYCLOSPORINE [Concomitant]
     Indication: PROPHYLAXIS AGAINST GRAFT VERSUS HOST DISEASE
     Dosage: TOTAL DAILY DOSE: 500 MG
     Dates: start: 20090415, end: 20090419
  7. CYCLOSPORINE [Concomitant]
     Dates: end: 20090907
  8. CYCLOSPORINE [Concomitant]
     Dosage: TOTAL DAILY DOSE: 300 MG
     Dates: start: 20090420, end: 20090422
  9. CYCLOSPORINE [Concomitant]
     Dosage: TOTAL DAILY DOSE: 100 MG
     Dates: start: 20090420, end: 20090422
  10. CYCLOSPORINE [Concomitant]
     Dates: start: 20090315, end: 20090414
  11. CEFEPIME HYDROCHLORIDE [Concomitant]
     Indication: INFECTION PROPHYLAXIS
     Dates: start: 20090310, end: 20090412
  12. VANCOMYCIN HYDROCHLORIDE [Concomitant]
     Indication: INFECTION PROPHYLAXIS
     Dates: start: 20090310
  13. HYDROCORTISONE SODIUM SUCCINATE [Concomitant]
     Dates: start: 20090411, end: 20090415
  14. METHYLPREDNISOLONE SODIUM SUCCINATE [Concomitant]
     Indication: PREMEDICATION
     Dates: start: 20090311, end: 20090314
  15. CYCLOPHOSPHAMIDE [Concomitant]
  16. CHLORPHENIRAMINE MALEATE [Concomitant]
     Indication: ALLERGY PROPHYLAXIS
     Dates: start: 20090311
  17. METHOTREXATE [Concomitant]
     Indication: PROPHYLAXIS AGAINST GRAFT VERSUS HOST DISEASE
     Dates: start: 20090317, end: 20090322
  18. FILGRASTIM (GENETICAL RECOMBINATION) [Concomitant]
     Indication: PROPHYLAXIS
     Dates: start: 20090323
  19. ITRACONAZOLE [Concomitant]
     Indication: INFECTION PROPHYLAXIS
     Dates: start: 20090423, end: 20090608
  20. FOSCARNET SODIUM [Concomitant]
     Indication: CYTOMEGALOVIRUS CHORIORETINITIS
     Dates: start: 20090710, end: 20090908

REACTIONS (11)
  - ALTERED STATE OF CONSCIOUSNESS [None]
  - CYSTITIS HAEMORRHAGIC [None]
  - CYTOMEGALOVIRUS CHORIORETINITIS [None]
  - CYTOMEGALOVIRUS TEST POSITIVE [None]
  - HAEMATURIA [None]
  - PANCYTOPENIA [None]
  - PYREXIA [None]
  - RESPIRATORY ARREST [None]
  - SHOCK HAEMORRHAGIC [None]
  - VIRAL INFECTION [None]
  - VISUAL IMPAIRMENT [None]
